FAERS Safety Report 8092002 (Version 3)
Quarter: 2016Q1

REPORT INFORMATION
  Report Type: Spontaneous
  Country: RO (occurrence: RO)
  Receive Date: 20110816
  Receipt Date: 20160110
  Transmission Date: 20160526
  Serious: Yes (Other)
  Sender: FDA-Public Use
  Company Number: PHHY2011RO70391

PATIENT
  Age: 51 Year
  Sex: Female

DRUGS (2)
  1. AMANTADINE [Suspect]
     Active Substance: AMANTADINE
     Indication: NEUROLEPTIC MALIGNANT SYNDROME
     Dosage: 200 MG, QD
     Route: 065
  2. BROMOCRIPTINE [Suspect]
     Active Substance: BROMOCRIPTINE
     Indication: NEUROLEPTIC MALIGNANT SYNDROME
     Dosage: 20 MG, QD
     Route: 065

REACTIONS (4)
  - Blood creatine phosphokinase increased [Recovered/Resolved]
  - Acute kidney injury [Recovered/Resolved]
  - Pyrexia [Recovered/Resolved]
  - Stupor [Recovered/Resolved]
